FAERS Safety Report 11064295 (Version 1)
Quarter: 2015Q2

REPORT INFORMATION
  Report Type: Spontaneous
  Country: JP (occurrence: JP)
  Receive Date: 20150424
  Receipt Date: 20150424
  Transmission Date: 20150821
  Serious: Yes (Death)
  Sender: FDA-Public Use
  Company Number: JP-MALLINCKRODT-T201502192

PATIENT
  Age: 67 Year
  Sex: Female

DRUGS (14)
  1. METHADONE [Suspect]
     Active Substance: METHADONE HYDROCHLORIDE
     Indication: CANCER PAIN
     Dosage: 55MG, (220MG DAILY DOSE)
     Route: 048
     Dates: start: 20141125, end: 20141225
  2. METHADONE [Suspect]
     Active Substance: METHADONE HYDROCHLORIDE
     Dosage: 35MG, (140MG DAILY DOSE)
     Route: 048
     Dates: start: 20150106, end: 20150109
  3. MORPHINE HYDROCHLORIDE [Concomitant]
     Active Substance: MORPHINE HYDROCHLORIDE
     Dosage: 15MG
     Route: 051
     Dates: start: 20141224, end: 20150113
  4. CELECOX [Concomitant]
     Active Substance: CELECOXIB
     Dosage: 200MG
     Route: 048
     Dates: end: 20141218
  5. LYRICA [Concomitant]
     Active Substance: PREGABALIN
     Dosage: 50MG
     Route: 048
     Dates: start: 20141212, end: 20141225
  6. MUCOSTA [Concomitant]
     Active Substance: REBAMIPIDE
     Dosage: 300MG
     Route: 048
     Dates: end: 20150109
  7. MAGMITT [Concomitant]
     Active Substance: MAGNESIUM OXIDE
     Dosage: 990MG
     Route: 048
     Dates: end: 20150109
  8. METHADONE [Suspect]
     Active Substance: METHADONE HYDROCHLORIDE
     Dosage: 45MG, (180MG DAILY DOSE)
     Route: 048
     Dates: start: 20141226, end: 20150105
  9. VOTRIENT [Concomitant]
     Active Substance: PAZOPANIB HYDROCHLORIDE
     Dosage: 800MG
     Route: 048
     Dates: end: 20141202
  10. PURSENNID [Concomitant]
     Active Substance: SENNOSIDES A AND B
     Dosage: 12MG
     Route: 048
     Dates: end: 20150109
  11. KEPPRA [Concomitant]
     Active Substance: LEVETIRACETAM
     Dosage: 500MG
     Route: 048
     Dates: end: 20141208
  12. LASIX [Concomitant]
     Active Substance: FUROSEMIDE
     Dosage: 40MG
     Route: 048
     Dates: end: 20150109
  13. PREDONINE [Concomitant]
     Active Substance: PREDNISOLONE\PREDNISOLONE ACETATE\PREDNISOLONE SODIUM SUCCINATE
     Dosage: 20MG
     Dates: end: 20150109
  14. NEXIUM [Concomitant]
     Active Substance: ESOMEPRAZOLE MAGNESIUM
     Dosage: 20MG
     Route: 048
     Dates: end: 20150109

REACTIONS (1)
  - Angiosarcoma [Fatal]
